FAERS Safety Report 24582519 (Version 1)
Quarter: 2024Q4

REPORT INFORMATION
  Report Type: Report from Study
  Country: JP (occurrence: JP)
  Receive Date: 20241106
  Receipt Date: 20241106
  Transmission Date: 20250115
  Serious: Yes (Other)
  Sender: JOHNSON AND JOHNSON
  Company Number: JP-ACTELION-A-CH2018-172892

PATIENT
  Age: 48 Year
  Sex: Female

DRUGS (13)
  1. TRACLEER [Suspect]
     Active Substance: BOSENTAN
     Indication: Scleroderma associated digital ulcer
     Dosage: 62.5 MG, BID
     Route: 048
     Dates: start: 20170515, end: 20170531
  2. TRACLEER [Suspect]
     Active Substance: BOSENTAN
     Indication: Skin ulcer
     Dosage: 31.25 MG, BID
     Route: 048
     Dates: start: 20170707
  3. TRACLEER [Suspect]
     Active Substance: BOSENTAN
     Dosage: 15.625 MG, BID
     Route: 048
     Dates: start: 20170802, end: 20170905
  4. TRACLEER [Suspect]
     Active Substance: BOSENTAN
     Dosage: 31.25 MG, BID
     Route: 048
     Dates: start: 20170906, end: 20171015
  5. TRACLEER [Suspect]
     Active Substance: BOSENTAN
     Dosage: 62.5 MG, BID
     Route: 048
     Dates: start: 20171016, end: 201711
  6. TRACLEER [Suspect]
     Active Substance: BOSENTAN
     Dosage: 125 MG, BID
     Route: 048
     Dates: start: 201711, end: 20180115
  7. TRACLEER [Suspect]
     Active Substance: BOSENTAN
     Dosage: 125 MG, BID
     Route: 048
     Dates: start: 20180326
  8. ALPROSTADIL [Concomitant]
     Active Substance: ALPROSTADIL
     Indication: Peripheral vascular disorder
     Dosage: UNK
  9. BUFFERIN [ACETYLSALICYLIC ACID] [Concomitant]
     Indication: Peripheral vascular disorder
     Dates: start: 20171220, end: 20180115
  10. BUFFERIN [ACETYLSALICYLIC ACID] [Concomitant]
     Dosage: UNK
     Dates: start: 20180205
  11. CILOSTAZOL [Concomitant]
     Active Substance: CILOSTAZOL
     Indication: Peripheral vascular disorder
     Dates: start: 20171220, end: 20180115
  12. CILOSTAZOL [Concomitant]
     Active Substance: CILOSTAZOL
     Dates: start: 20180205
  13. SARPOGRELATE HYDROCHLORIDE [Concomitant]
     Active Substance: SARPOGRELATE HYDROCHLORIDE
     Indication: Peripheral vascular disorder
     Dosage: UNK
     Route: 048

REACTIONS (10)
  - Genital haemorrhage [Recovered/Resolved]
  - Anaemia [Recovered/Resolved]
  - Drug-induced liver injury [Recovered/Resolved]
  - Pyrexia [Recovered/Resolved]
  - Decreased appetite [Recovered/Resolved]
  - Liver disorder [Recovered/Resolved]
  - Blood bilirubin increased [Recovered/Resolved]
  - Blood alkaline phosphatase increased [Recovered/Resolved]
  - Aspartate aminotransferase increased [Recovered/Resolved]
  - Alanine aminotransferase increased [Recovered/Resolved]

NARRATIVE: CASE EVENT DATE: 20170531
